FAERS Safety Report 19478019 (Version 3)
Quarter: 2023Q2

REPORT INFORMATION
  Report Type: Spontaneous
  Country: US (occurrence: US)
  Receive Date: 20210630
  Receipt Date: 20230622
  Transmission Date: 20230721
  Serious: Yes (Other)
  Sender: FDA-Public Use
  Company Number: US-PFIZER INC-2021748331

PATIENT
  Age: 74 Year
  Sex: Male

DRUGS (5)
  1. IBRANCE [Suspect]
     Active Substance: PALBOCICLIB
     Indication: Bile duct cancer
     Dosage: 125 MG
  2. IBRANCE [Suspect]
     Active Substance: PALBOCICLIB
     Indication: Bone lesion
     Dosage: 125 MG, CYCLIC
     Dates: start: 20211020
  3. IBRANCE [Suspect]
     Active Substance: PALBOCICLIB
     Indication: Breast cancer female
     Dosage: TAKE ON DAYS 1-21 OF 28 DAY CYCLE
     Route: 048
     Dates: start: 20220824
  4. IBRANCE [Suspect]
     Active Substance: PALBOCICLIB
     Indication: Obesity
     Dosage: TAKE ON DAYS 1-21 OF 28 DAY CYCLE
     Route: 048
     Dates: start: 20220921
  5. IBRANCE [Suspect]
     Active Substance: PALBOCICLIB
     Dosage: TAKE ON DAYS 1-21 OF 28 DAY CYCLE
     Route: 048
     Dates: start: 20221019

REACTIONS (2)
  - Fall [Unknown]
  - Hip fracture [Unknown]
